FAERS Safety Report 9554332 (Version 3)
Quarter: 2013Q4

REPORT INFORMATION
  Report Type: Report from Study
  Country: CA (occurrence: CA)
  Receive Date: 20130925
  Receipt Date: 20131121
  Transmission Date: 20140711
  Serious: Yes (Hospitalization, Other)
  Sender: FDA-Public Use
  Company Number: CA-ABBVIE-13P-028-1149656-00

PATIENT
  Age: 31 Year
  Sex: Male
  Weight: 88.53 kg

DRUGS (2)
  1. KALETRA 200/50 [Suspect]
     Indication: HIV INFECTION
     Dosage: 200/50 MG 2 TABS
     Route: 048
     Dates: start: 20130812
  2. TRUVADA [Concomitant]
     Indication: HIV INFECTION
     Dosage: 200/300 MG
     Route: 048
     Dates: start: 20130812

REACTIONS (20)
  - Kaposi^s sarcoma [Not Recovered/Not Resolved]
  - Memory impairment [Unknown]
  - Hearing impaired [Unknown]
  - HIV infection [Unknown]
  - Sepsis [Unknown]
  - Cardiac disorder [Unknown]
  - Blood potassium increased [Unknown]
  - Blood sodium decreased [Unknown]
  - Skin odour abnormal [Unknown]
  - Malaise [Recovering/Resolving]
  - Asthenia [Unknown]
  - Condition aggravated [Unknown]
  - Dysstasia [Unknown]
  - Gait disturbance [Unknown]
  - Haemoglobin decreased [Unknown]
  - Pyrexia [Unknown]
  - Malaise [Unknown]
  - Fatigue [Unknown]
  - Skin mass [Recovered/Resolved]
  - Eye disorder [Unknown]
